FAERS Safety Report 4981673-1 (Version None)
Quarter: 2006Q2

REPORT INFORMATION
  Report Type: 
  Country: None (occurrence: None)
  Receive Date: 20060420
  Receipt Date: 20060420
  Transmission Date: 20061013
  Serious: Yes (Hospitalization, Other)
  Sender: FDA-Public Use
  Company Number: None

PATIENT
  Sex: Female
  Weight: 47.2 kg

DRUGS (2)
  1. CYTARABINE [Suspect]
     Indication: ACUTE MYELOID LEUKAEMIA
     Dosage: 980 MG
     Dates: start: 20060402
  2. DAUNORUBICIN [Suspect]
     Dosage: 255 MG
     Dates: start: 20060329

REACTIONS (18)
  - ABDOMINAL DISTENSION [None]
  - BLOOD BILIRUBIN INCREASED [None]
  - BOWEL SOUNDS ABNORMAL [None]
  - COLITIS [None]
  - CULTURE URINE POSITIVE [None]
  - DYSPNOEA [None]
  - ENTEROCOCCAL INFECTION [None]
  - GALLBLADDER DISORDER [None]
  - HAEMODIALYSIS [None]
  - HYPOTENSION [None]
  - LETHARGY [None]
  - MUCOSAL INFLAMMATION [None]
  - OLIGURIA [None]
  - PLEURAL EFFUSION [None]
  - PNEUMONIA [None]
  - RENAL FAILURE ACUTE [None]
  - RENAL TUBULAR NECROSIS [None]
  - SEPSIS [None]
